FAERS Safety Report 13791747 (Version 2)
Quarter: 2017Q3

REPORT INFORMATION
  Report Type: Report from Study
  Country: US (occurrence: BR)
  Receive Date: 20170725
  Receipt Date: 20170829
  Transmission Date: 20171127
  Serious: Yes (Death)
  Sender: FDA-Public Use
  Company Number: US-SUNOVION-2017SUN003181

PATIENT
  Sex: Female

DRUGS (1)
  1. GLYCOPYRROLATE. [Suspect]
     Active Substance: GLYCOPYRROLATE
     Indication: PRODUCT USED FOR UNKNOWN INDICATION
     Dosage: 0.05 MG, UNK
     Route: 065

REACTIONS (6)
  - Respiratory arrest [Fatal]
  - Respiratory failure [Fatal]
  - Infection [Fatal]
  - Pneumonia [Fatal]
  - Respiratory rate decreased [Not Recovered/Not Resolved]
  - Myocardial infarction [Fatal]
